FAERS Safety Report 5938663-1 (Version None)
Quarter: 2008Q4

REPORT INFORMATION
  Report Type: 
  Country: None (occurrence: None)
  Receive Date: 20081103
  Receipt Date: 20081027
  Transmission Date: 20090506
  Serious: Yes (Death, Other)
  Sender: FDA-Public Use
  Company Number: US-ROCHE-590332

PATIENT
  Sex: Female
  Weight: 81.6 kg

DRUGS (8)
  1. CAPECITABINE [Suspect]
     Dosage: DOSE: 1000 MG/ M2 AM AND 1000 MG/ M2 PM; FREQUENCY: TAKEN FOR 14 DAYS EVERY THREE WEEKS
     Route: 048
     Dates: start: 20070725, end: 20080923
  2. ATROVENT [Concomitant]
  3. AVASTIN [Concomitant]
  4. ELOXATIN [Concomitant]
  5. LASIX [Concomitant]
  6. CELEXA [Concomitant]
  7. ALBUTEROL [Concomitant]
  8. DUONEB [Concomitant]

REACTIONS (2)
  - DISEASE PROGRESSION [None]
  - METASTASES TO LUNG [None]
